FAERS Safety Report 10103402 (Version 1)
Quarter: 2014Q2

REPORT INFORMATION
  Report Type: Spontaneous
  Country: US (occurrence: US)
  Receive Date: 20140424
  Receipt Date: 20140424
  Transmission Date: 20141212
  Serious: Yes (Other)
  Sender: FDA-Public Use
  Company Number: US-BAYER-2014-056353

PATIENT
  Age: 15 Year
  Sex: Female
  Weight: 39 kg

DRUGS (3)
  1. ALEVE CAPLET [Suspect]
     Dosage: 3 DF, ONCE
     Route: 048
     Dates: start: 20140414, end: 20140414
  2. VITAMIN D [Concomitant]
  3. VITAMIN C [Concomitant]

REACTIONS (3)
  - Self injurious behaviour [None]
  - Extra dose administered [None]
  - Expired product administered [None]
